FAERS Safety Report 23647476 (Version 2)
Quarter: 2024Q2

REPORT INFORMATION
  Report Type: Spontaneous
  Country: US (occurrence: US)
  Receive Date: 20240319
  Receipt Date: 20240416
  Transmission Date: 20240715
  Serious: Yes (Death)
  Sender: FDA-Public Use
  Company Number: US-UPSHER-SMITH LABORATORIES, LLC-2024USL00227

PATIENT
  Age: 54 Year
  Sex: Male

DRUGS (15)
  1. ISOTRETINOIN [Suspect]
     Active Substance: ISOTRETINOIN
     Indication: Acne cystic
     Dosage: 20 MG, 1X/DAY WITH FOOD
     Route: 048
     Dates: start: 20231206, end: 20240217
  2. CLOBETASOL [Concomitant]
     Active Substance: CLOBETASOL
     Route: 061
  3. CORDRAN [Concomitant]
     Active Substance: FLURANDRENOLIDE
     Route: 061
  4. DOXEPIN [Concomitant]
     Active Substance: DOXEPIN
     Route: 061
  5. KETOCONAZOLE [Concomitant]
     Active Substance: KETOCONAZOLE
  6. ATACAND [Concomitant]
     Active Substance: CANDESARTAN CILEXETIL
  7. CYMBALTA [Concomitant]
     Active Substance: DULOXETINE HYDROCHLORIDE
  8. LIPITOR [Concomitant]
     Active Substance: ATORVASTATIN CALCIUM
  9. POTASSIUM CHLORIDE [Concomitant]
     Active Substance: POTASSIUM CHLORIDE
  10. PRILOSEC [Concomitant]
     Active Substance: OMEPRAZOLE MAGNESIUM
  11. TOPROL XL [Concomitant]
     Active Substance: METOPROLOL SUCCINATE
  12. DUPIXENT [Concomitant]
     Active Substance: DUPILUMAB
     Dosage: 300 MG, EVERY 2 WEEKS
  13. SILVER SULFADIAZENE [Concomitant]
     Active Substance: SILVER SULFADIAZINE
  14. BENZOYL PEROXIDE [Concomitant]
     Active Substance: BENZOYL PEROXIDE
     Route: 061
  15. KEFLEX [Concomitant]
     Active Substance: CEPHALEXIN
     Dosage: 500 MG, 3X/DAY

REACTIONS (1)
  - Completed suicide [Fatal]

NARRATIVE: CASE EVENT DATE: 20240217
